FAERS Safety Report 16570832 (Version 2)
Quarter: 2019Q3

REPORT INFORMATION
  Report Type: Spontaneous
  Country: US (occurrence: US)
  Receive Date: 20190715
  Receipt Date: 20190722
  Transmission Date: 20191004
  Serious: Yes (Other)
  Sender: FDA-Public Use
  Company Number: US-PFIZER INC-2019297911

PATIENT
  Age: 83 Year
  Sex: Female

DRUGS (2)
  1. TIKOSYN [Suspect]
     Active Substance: DOFETILIDE
     Indication: ATRIAL FIBRILLATION
  2. TIKOSYN [Suspect]
     Active Substance: DOFETILIDE
     Indication: BUNDLE BRANCH BLOCK LEFT
     Dosage: 250 UG, 2X/DAY (TAKE ONE CAPSULE BY MOUTH EVERY TWELVE HOURS)
     Route: 048

REACTIONS (5)
  - Fall [Unknown]
  - Drug ineffective for unapproved indication [Unknown]
  - Spinal fracture [Unknown]
  - Palpitations [Unknown]
  - Off label use [Unknown]
